FAERS Safety Report 19996886 (Version 1)
Quarter: 2021Q4

REPORT INFORMATION
  Report Type: Spontaneous
  Country: US (occurrence: US)
  Receive Date: 20211026
  Receipt Date: 20211026
  Transmission Date: 20220303
  Serious: Yes (Other)
  Sender: FDA-Public Use
  Company Number: US-ALVOGEN-2021-ALVOGEN-117682

PATIENT
  Age: 42 Year
  Sex: Female
  Weight: 57.61 kg

DRUGS (1)
  1. CLINDAMYCIN [Suspect]
     Active Substance: CLINDAMYCIN
     Indication: Jaw operation
     Dates: start: 2007

REACTIONS (4)
  - Anaphylactic reaction [Unknown]
  - Pharyngeal swelling [Unknown]
  - Drug hypersensitivity [Unknown]
  - Off label use [Unknown]
